FAERS Safety Report 6020865-X (Version None)
Quarter: 2008Q4

REPORT INFORMATION
  Report Type: 
  Country: None (occurrence: None)
  Receive Date: 20081229
  Receipt Date: 20081219
  Transmission Date: 20090506
  Serious: Yes (Hospitalization, Other)
  Sender: FDA-Public Use
  Company Number: US-BAYER-200611158BWH

PATIENT
  Age: 74 Year
  Sex: Female
  Weight: 61 kg

DRUGS (19)
  1. NEXAVAR [Suspect]
     Indication: METASTATIC RENAL CELL CARCINOMA
     Dosage: TOTAL DAILY DOSE: 400 MG  UNIT DOSE: 200 MG
     Route: 048
     Dates: start: 20060522, end: 20061115
  2. NEXAVAR [Suspect]
     Dosage: TOTAL DAILY DOSE: 400 MG  UNIT DOSE: 200 MG
     Route: 048
     Dates: start: 20061201
  3. NEXAVAR [Suspect]
     Dosage: TOTAL DAILY DOSE: 800 MG  UNIT DOSE: 200 MG
     Route: 048
     Dates: start: 20060201, end: 20060505
  4. DELTASONE [Concomitant]
     Dosage: TOTAL DAILY DOSE: 5 MG
  5. LOTENSIN [Concomitant]
     Dosage: TOTAL DAILY DOSE: 20 MG
  6. LOPRESSOR [Concomitant]
     Dosage: TOTAL DAILY DOSE: 12.5 MG
  7. SYNTHROID [Concomitant]
     Dosage: TOTAL DAILY DOSE: 75 ?G
  8. MIACALCIN [Concomitant]
  9. FERROUS SULFATE TAB [Concomitant]
     Dosage: TOTAL DAILY DOSE: 7.5 MG
  10. ROBINUL FORTE [Concomitant]
     Dosage: TOTAL DAILY DOSE: 2 MG
  11. DUKE'S MOUTHWASH [Concomitant]
  12. CALCIUM [Concomitant]
     Dosage: TOTAL DAILY DOSE: 500 MG
  13. ROBITUSSIN (NOS) [Concomitant]
  14. TYLENOL (CAPLET) [Concomitant]
  15. COLACE [Concomitant]
  16. BENEFIBER [Concomitant]
  17. BACLOFEN [Concomitant]
  18. MOM [Concomitant]
  19. GLYCOPYRROLATE [Concomitant]

REACTIONS (13)
  - ALOPECIA [None]
  - BLOOD PRESSURE INCREASED [None]
  - CONSTIPATION [None]
  - CONTUSION [None]
  - DIARRHOEA [None]
  - EYE HAEMORRHAGE [None]
  - FAECALOMA [None]
  - HAEMATOCHEZIA [None]
  - NAUSEA [None]
  - OCULAR HYPERAEMIA [None]
  - ORAL PAIN [None]
  - SKIN EXFOLIATION [None]
  - VOMITING [None]
